FAERS Safety Report 8058485-8 (Version None)
Quarter: 2012Q1

REPORT INFORMATION
  Report Type: 
  Country: None (occurrence: None)
  Receive Date: 20120120
  Receipt Date: 20120118
  Transmission Date: 20120608
  Serious: Yes (Other)
  Sender: FDA-Public Use
  Company Number: US-PFIZER INC-2012015738

PATIENT
  Sex: Female
  Weight: 65.76 kg

DRUGS (9)
  1. OXYCODONE [Concomitant]
     Dosage: 10/325MG, 4X/DAY
  2. PERCOCET [Concomitant]
     Dosage: [OXYCODONE 10 MG]/[ACETAMINOPHEN325 MG], 4X/DAY
  3. ZOLOFT [Suspect]
     Indication: DEPRESSION
     Dosage: 100 MG, DAILY
  4. ZOLOFT [Suspect]
     Indication: ANXIETY
  5. ZOLOFT [Suspect]
     Indication: PANIC ATTACK
  6. PREMARIN [Suspect]
     Indication: HYSTERECTOMY
     Dosage: 0.625 MG, DAILY
  7. FENTANYL [Concomitant]
     Indication: PAIN
     Dosage: UNK
  8. TIZANIDINE [Concomitant]
     Dosage: 2 MG, UNK
  9. TIZANIDINE [Concomitant]
     Dosage: 4 MG, UNK
     Dates: start: 20120103

REACTIONS (1)
  - OVARIAN DISORDER [None]
